FAERS Safety Report 9842978 (Version 1)
Quarter: 2014Q1

REPORT INFORMATION
  Report Type: Spontaneous
  Country: US (occurrence: US)
  Receive Date: 20140124
  Receipt Date: 20140124
  Transmission Date: 20141002
  Serious: No
  Sender: FDA-Public Use
  Company Number: US-TEVA-455146USA

PATIENT
  Sex: Male
  Weight: 102.15 kg

DRUGS (2)
  1. QNASL [Suspect]
     Indication: SINUS CONGESTION
     Dosage: 2
     Route: 045
  2. BLOOD PRESSURE MEDICATION [Concomitant]
     Indication: HYPERTENSION

REACTIONS (1)
  - Nasal discomfort [Unknown]
